FAERS Safety Report 10615148 (Version 2)
Quarter: 2014Q4

REPORT INFORMATION
  Report Type: Spontaneous
  Country: CH (occurrence: CH)
  Receive Date: 20141201
  Receipt Date: 20141201
  Transmission Date: 20150529
  Serious: Yes (Other)
  Sender: FDA-Public Use
  Company Number: CH-RANBAXY-2012R1-55528

PATIENT
  Sex: Female

DRUGS (1)
  1. RISPERIDONE. [Suspect]
     Active Substance: RISPERIDONE
     Indication: PRODUCT USED FOR UNKNOWN INDICATION
     Dosage: 2 MG, BID
     Route: 065

REACTIONS (4)
  - Disturbance in attention [Unknown]
  - Asthenia [Unknown]
  - Agitation [Unknown]
  - Parkinsonism [Unknown]
